FAERS Safety Report 17080895 (Version 1)
Quarter: 2019Q4

REPORT INFORMATION
  Report Type: Spontaneous
  Country: US (occurrence: US)
  Receive Date: 20191126
  Receipt Date: 20191126
  Transmission Date: 20200122
  Serious: Yes (Hospitalization)
  Sender: FDA-Public Use
  Company Number: None

PATIENT
  Age: 29 Year
  Sex: Male
  Weight: 75.4 kg

DRUGS (23)
  1. APIXABAN [Concomitant]
     Active Substance: APIXABAN
     Dates: start: 20191109, end: 20191125
  2. KETAMINE [Concomitant]
     Active Substance: KETAMINE
     Dates: start: 20191108, end: 20191117
  3. PLASMALYTE [Concomitant]
     Active Substance: ELECTROLYTES NOS
     Dates: start: 20191108, end: 20191114
  4. ETOMIDATE. [Concomitant]
     Active Substance: ETOMIDATE
     Dates: start: 20191113, end: 20191114
  5. AMLODIPINE [Concomitant]
     Active Substance: AMLODIPINE BESYLATE
     Dates: start: 20191114, end: 20191125
  6. CHLORHEXIDINE [Concomitant]
     Active Substance: CHLORHEXIDINE
     Dates: start: 20191111, end: 20191120
  7. DIAZEPAM. [Concomitant]
     Active Substance: DIAZEPAM
     Dates: start: 20191113, end: 20191120
  8. ACYCLOVIR. [Concomitant]
     Active Substance: ACYCLOVIR
     Dates: start: 20191108, end: 20191108
  9. VALPROATE [Concomitant]
     Active Substance: VALPROIC ACID
     Dates: start: 20191114, end: 20191119
  10. CEFEPIME [Concomitant]
     Active Substance: CEFEPIME HYDROCHLORIDE
     Dates: start: 20191108, end: 20191109
  11. FENTANYL. [Concomitant]
     Active Substance: FENTANYL
     Dates: start: 20191108, end: 20191114
  12. ACETAMINOPHEN (SUPP) PRN [Concomitant]
     Dates: start: 20191108
  13. PROPOFOL. [Concomitant]
     Active Substance: PROPOFOL
     Dates: start: 20191114, end: 20191117
  14. ATIVAN [Concomitant]
     Active Substance: LORAZEPAM
     Dates: start: 20191108, end: 20191108
  15. LEVETIRACETAM. [Suspect]
     Active Substance: LEVETIRACETAM
     Indication: SEIZURE
     Route: 048
     Dates: start: 20191108, end: 20191114
  16. ROCEPHIN [Concomitant]
     Active Substance: CEFTRIAXONE SODIUM
     Dates: start: 20191108, end: 20191108
  17. HYDRALAZINE [Concomitant]
     Active Substance: HYDRALAZINE HYDROCHLORIDE
     Dates: start: 20191114, end: 20191117
  18. DIPHENHYDRAMINE. [Concomitant]
     Active Substance: DIPHENHYDRAMINE
     Dates: start: 20191113, end: 20191118
  19. OXYCODONE [Concomitant]
     Active Substance: OXYCODONE
     Dates: start: 20191114, end: 20191117
  20. KEPPRA [Suspect]
     Active Substance: LEVETIRACETAM
     Indication: SEIZURE
     Dosage: ?          OTHER FREQUENCY:ONCE;?
     Route: 042
     Dates: start: 20191108, end: 20191108
  21. VANCOMYCIN [Concomitant]
     Active Substance: VANCOMYCIN
     Dates: start: 20191108, end: 20191109
  22. MIDAZOLAM [Concomitant]
     Active Substance: MIDAZOLAM HYDROCHLORIDE
     Dates: start: 20191108, end: 20191117
  23. DEXAMETHASONE. [Concomitant]
     Active Substance: DEXAMETHASONE
     Dates: start: 20191113, end: 20191120

REACTIONS (5)
  - Meningitis [None]
  - Sepsis [None]
  - Therapy change [None]
  - Angioedema [None]
  - Treatment noncompliance [None]

NARRATIVE: CASE EVENT DATE: 20191108
